FAERS Safety Report 4422845-4 (Version None)
Quarter: 2004Q3

REPORT INFORMATION
  Report Type: 
  Country: None (occurrence: None)
  Receive Date: 20040806
  Receipt Date: 20040716
  Transmission Date: 20050211
  Serious: Yes (Hospitalization)
  Sender: FDA-Public Use
  Company Number: USA040772865

PATIENT
  Age: 83 Year
  Sex: Female

DRUGS (6)
  1. FORTEO [Suspect]
     Indication: OSTEOPOROSIS
     Dates: start: 20040206
  2. AVAPRO [Concomitant]
  3. ACTOS [Concomitant]
  4. DILTIAZEM ER (DILTEAZEM HYDROCHLORIDE) [Concomitant]
  5. TYLOX [Concomitant]
  6. NEURONTIN [Concomitant]

REACTIONS (2)
  - HIP FRACTURE [None]
  - PHARMACEUTICAL PRODUCT COMPLAINT [None]
